FAERS Safety Report 5092008-0 (Version None)
Quarter: 2006Q3

REPORT INFORMATION
  Report Type: 
  Country: None (occurrence: None)
  Receive Date: 20060825
  Receipt Date: 20060809
  Transmission Date: 20061208
  Serious: Yes (Death)
  Sender: FDA-Public Use
  Company Number: ES200608002221

PATIENT
  Age: 66 Year
  Sex: Male
  Weight: 70 kg

DRUGS (16)
  1. GEMCITABINE [Suspect]
     Indication: LUNG NEOPLASM MALIGNANT
     Dosage: 1250 MG/M2, OTHER, INTRAVENOUS
     Route: 042
     Dates: start: 20060207, end: 20060502
  2. CARBOPLATIN [Suspect]
     Indication: LUNG NEOPLASM MALIGNANT
     Dosage: 5 , OTHER ,INTRAVENOUS
     Route: 042
     Dates: start: 20060207, end: 20060418
  3. FOLIC ACID [Concomitant]
  4. OPTOVITE B12 (CYANOCOBALAMIN) [Concomitant]
  5. ENALAPRIL [Concomitant]
  6. INSULATARD NOVOLET (INSULIN HUMAN INJECTION, ISOPHANE) [Concomitant]
  7. DIANBEN (METFORMIN HYDROCHLORIDE) [Concomitant]
  8. DIGOXIN [Concomitant]
  9. CARVEDILOL [Concomitant]
  10. SINTROM [Concomitant]
  11. ZOCORD (SIMVASTATIN) [Concomitant]
  12. DURAGESIC-100 [Concomitant]
  13. NEURONTIN [Concomitant]
  14. FORTECORTIN (DEXAMETHASONE) [Concomitant]
  15. EPOGEN [Concomitant]
  16. FERROGRADUMET (FERROUS SULFATE) [Concomitant]

REACTIONS (8)
  - CEREBRAL HAEMORRHAGE [None]
  - DEPRESSED LEVEL OF CONSCIOUSNESS [None]
  - DYSPNOEA [None]
  - GENERAL PHYSICAL HEALTH DETERIORATION [None]
  - HAEMOGLOBIN DECREASED [None]
  - INTERNATIONAL NORMALISED RATIO INCREASED [None]
  - PLATELET COUNT DECREASED [None]
  - PROTHROMBIN TIME SHORTENED [None]
